FAERS Safety Report 16937063 (Version 1)
Quarter: 2019Q4

REPORT INFORMATION
  Report Type: Report from Study
  Country: None (occurrence: US)
  Receive Date: 20191018
  Receipt Date: 20191018
  Transmission Date: 20200122
  Serious: Yes (Other)
  Sender: FDA-Public Use
  Company Number: US-ABBVIE-19K-163-2963003-00

PATIENT
  Sex: Female

DRUGS (1)
  1. HUMIRA [Suspect]
     Active Substance: ADALIMUMAB
     Indication: CROHN^S DISEASE
     Route: 058

REACTIONS (7)
  - Headache [Unknown]
  - Injection site bruising [Unknown]
  - Diarrhoea [Unknown]
  - Tremor [Unknown]
  - Balance disorder [Unknown]
  - Foot deformity [Unknown]
  - Injection site erythema [Unknown]
